FAERS Safety Report 9764573 (Version 1)
Quarter: 2013Q4

REPORT INFORMATION
  Report Type: Spontaneous
  Country: US (occurrence: US)
  Receive Date: 20131217
  Receipt Date: 20131217
  Transmission Date: 20140711
  Serious: No
  Sender: FDA-Public Use
  Company Number: US-BAYER-2013-151626

PATIENT
  Sex: Female
  Weight: 57.14 kg

DRUGS (12)
  1. BETASERON [Suspect]
     Dosage: 0.25 MG, QOD
     Route: 058
  2. CALCIUM WITH VITAMIN D [Concomitant]
  3. PREMARIN [Concomitant]
     Dosage: 0.45 MG, UNK
  4. ESTRATEST [Concomitant]
  5. OMEPRAZOLE [Concomitant]
     Dosage: 10 MG, UNK
  6. WELLBUTRIN [Concomitant]
     Dosage: 100 MG, UNK
  7. VITAMIN E [Concomitant]
     Dosage: 100 U, UNK
  8. CRANBERRY [Concomitant]
  9. ZYRTEC [Concomitant]
     Dosage: 10 MG, UNK
  10. ASTELIN [Concomitant]
     Dosage: 137 ?G, UNK
  11. COLACE [Concomitant]
     Dosage: 50 MG, UNK
  12. TYLENOL [PARACETAMOL] [Concomitant]
     Dosage: 325 MG, UNK

REACTIONS (6)
  - Injection site pain [Recovering/Resolving]
  - Injection site haemorrhage [Recovering/Resolving]
  - Influenza like illness [Recovering/Resolving]
  - Pain [Recovering/Resolving]
  - Chills [Recovering/Resolving]
  - Malaise [Recovering/Resolving]
